FAERS Safety Report 5155879-5 (Version None)
Quarter: 2006Q4

REPORT INFORMATION
  Report Type: 
  Country: None (occurrence: None)
  Receive Date: 20061122
  Receipt Date: 20061114
  Transmission Date: 20070319
  Serious: Yes (Other)
  Sender: FDA-Public Use
  Company Number: US-JNJFOC-20060804421

PATIENT
  Sex: Female
  Weight: 61.24 kg

DRUGS (5)
  1. IMODIUM ADVANCED [Suspect]
  2. IMODIUM ADVANCED [Suspect]
     Indication: DIARRHOEA
  3. UNSPECIFIED ANTIHYPERTENSIVE [Concomitant]
     Indication: HYPERTENSION
  4. ARTHRITIS MEDICATION [Concomitant]
     Indication: ARTHRITIS
  5. GERD MEDICATION [Concomitant]
     Indication: GASTROOESOPHAGEAL REFLUX DISEASE

REACTIONS (2)
  - FOREIGN BODY TRAUMA [None]
  - LOSS OF CONSCIOUSNESS [None]
